FAERS Safety Report 6549235-2 (Version None)
Quarter: 2010Q1

REPORT INFORMATION
  Report Type: 
  Country: None (occurrence: None)
  Receive Date: 20100125
  Receipt Date: 20100114
  Transmission Date: 20100710
  Serious: Yes (Hospitalization)
  Sender: FDA-Public Use
  Company Number: JP-ASTRAZENECA-2010SE01997

PATIENT
  Age: 74 Year
  Sex: Female

DRUGS (12)
  1. IRESSA [Suspect]
     Indication: LUNG ADENOCARCINOMA
     Route: 048
     Dates: start: 20100108, end: 20100112
  2. OXYCONTIN [Concomitant]
     Indication: CANCER PAIN
     Route: 048
     Dates: start: 20091110
  3. VOLTAREN [Concomitant]
     Indication: CANCER PAIN
     Route: 048
     Dates: start: 20091107
  4. OMEPRAL [Concomitant]
     Route: 048
  5. MAGMITT [Concomitant]
     Indication: CONSTIPATION
     Route: 048
     Dates: start: 20091110, end: 20100109
  6. LOPEMIN [Concomitant]
     Indication: DIARRHOEA
     Dosage: 1 MG 1 TO 3 TIMES
     Route: 048
     Dates: start: 20100109
  7. FIRSTCIN [Concomitant]
     Indication: PYREXIA
     Route: 041
     Dates: start: 20100112
  8. BIOFERMIN R [Concomitant]
     Indication: DIARRHOEA
     Route: 048
     Dates: start: 20100112
  9. TAKEPRON [Concomitant]
     Indication: GASTROINTESTINAL ULCER
     Route: 048
     Dates: start: 20091107
  10. ALBUMIN TANNATE [Concomitant]
     Indication: DIARRHOEA
     Route: 048
     Dates: start: 20100110, end: 20100111
  11. ADSORBIN [Concomitant]
     Indication: DIARRHOEA
     Dosage: DOSE UNKNWON, AS REQUIRED
     Route: 048
     Dates: start: 20100110, end: 20100111
  12. CIPROFLOXACIN [Concomitant]
     Indication: C-REACTIVE PROTEIN INCREASED
     Route: 041
     Dates: start: 20100118

REACTIONS (3)
  - DIARRHOEA [None]
  - LEUKOPENIA [None]
  - PYREXIA [None]
